FAERS Safety Report 15872279 (Version 1)
Quarter: 2019Q1

REPORT INFORMATION
  Report Type: Other
  Country: US (occurrence: US)
  Receive Date: 20190126
  Receipt Date: 20190126
  Transmission Date: 20190417
  Serious: Yes (Hospitalization)
  Sender: FDA-Public Use
  Company Number: US-ACORDA-ACO_147598_2018

PATIENT
  Sex: Female

DRUGS (1)
  1. AMPYRA [Suspect]
     Active Substance: DALFAMPRIDINE
     Indication: MULTIPLE SCLEROSIS
     Dosage: 10 MG BID
     Route: 048

REACTIONS (7)
  - Gait disturbance [Unknown]
  - Urinary tract infection [Recovered/Resolved]
  - Impaired work ability [Unknown]
  - Fall [Recovered/Resolved]
  - Product dose omission [Unknown]
  - Disability [Unknown]
  - Dementia [None]

NARRATIVE: CASE EVENT DATE: 20180826
